FAERS Safety Report 17515188 (Version 1)
Quarter: 2020Q1

REPORT INFORMATION
  Report Type: Report from Study
  Country: US (occurrence: US)
  Receive Date: 20200309
  Receipt Date: 20200309
  Transmission Date: 20200409
  Serious: Yes (Other)
  Sender: FDA-Public Use
  Company Number: US-ROCHE-2557737

PATIENT

DRUGS (2)
  1. CAPECITABINE. [Suspect]
     Active Substance: CAPECITABINE
     Indication: BREAST CANCER METASTATIC
     Dosage: ON DAYS 1-14 OF A 21-DAY CYCLE.
     Route: 048
  2. PEMBROLIZUMAB. [Suspect]
     Active Substance: PEMBROLIZUMAB
     Indication: BREAST CANCER METASTATIC
     Route: 042

REACTIONS (14)
  - Aspartate aminotransferase increased [Unknown]
  - Alanine aminotransferase increased [Unknown]
  - Neutropenia [Unknown]
  - Anaemia [Unknown]
  - Blood alkaline phosphatase increased [Unknown]
  - Palmar-plantar erythrodysaesthesia syndrome [Unknown]
  - Rash maculo-papular [Unknown]
  - Lymphopenia [Unknown]
  - Hyperglycaemia [Unknown]
  - Acute kidney injury [Unknown]
  - Diarrhoea [Unknown]
  - Hypertension [Unknown]
  - Hypokalaemia [Unknown]
  - Hypoalbuminaemia [Unknown]
